FAERS Safety Report 6247857-X (Version None)
Quarter: 2009Q2

REPORT INFORMATION
  Report Type: 
  Country: None (occurrence: None)
  Receive Date: 20090626
  Receipt Date: 20090615
  Transmission Date: 20091009
  Serious: Yes (Other)
  Sender: FDA-Public Use
  Company Number: FR-PFIZER INC-2008017360

PATIENT
  Age: 72 Year

DRUGS (7)
  1. LYRICA [Suspect]
     Indication: PAIN
     Dosage: 75 MG, 3X/DAY
  2. LYRICA [Suspect]
     Dosage: 75 MG, 2X/DAY
  3. CLONAZEPAM [Concomitant]
     Dosage: UNK
  4. PROZAC [Concomitant]
     Indication: DEPRESSION
     Dosage: 0.5 DF, UNK
     Dates: start: 20090101
  5. TRAMADOL HYDROCHLORIDE AND ACETAMINOPHEN [Concomitant]
     Dosage: (TRAMADOL 37.5MG)(PARACETAMOL 325MG), 1 TABLET DAILY
  6. COSOPT [Concomitant]
     Dosage: UNK
  7. XALATAN [Concomitant]
     Dosage: UNK

REACTIONS (12)
  - ASTHENIA [None]
  - DIZZINESS [None]
  - DRY MOUTH [None]
  - DRY SKIN [None]
  - EOSINOPHILIA [None]
  - FATIGUE [None]
  - HAEMOGLOBIN DECREASED [None]
  - LIP HAEMORRHAGE [None]
  - PRURITUS [None]
  - SOMNOLENCE [None]
  - VERTIGO [None]
  - VISION BLURRED [None]
